FAERS Safety Report 8520541-5 (Version None)
Quarter: 2012Q3

REPORT INFORMATION
  Report Type: 
  Country: None (occurrence: None)
  Receive Date: 20120719
  Receipt Date: 20120712
  Transmission Date: 20120928
  Serious: No
  Sender: FDA-Public Use
  Company Number: US-009507513-1205USA05355

PATIENT

DRUGS (5)
  1. SINGULAIR [Suspect]
     Dosage: 10 MG, QD
     Route: 048
     Dates: start: 20120518, end: 20120522
  2. PREDNISONE [Concomitant]
     Indication: MIDDLE EAR INFLAMMATION
  3. PRINIVIL [Concomitant]
  4. PREDNISONE [Concomitant]
     Indication: EXTERNAL EAR INFLAMMATION
     Dosage: 50 MG, UNK
     Route: 048
     Dates: start: 20120518, end: 20120520
  5. PREDNISONE [Concomitant]
     Indication: INNER EAR INFLAMMATION

REACTIONS (4)
  - ASTHENIA [None]
  - LAZINESS [None]
  - PERFORMANCE STATUS DECREASED [None]
  - LETHARGY [None]
